FAERS Safety Report 4537509-6 (Version None)
Quarter: 2004Q4

REPORT INFORMATION
  Report Type: 
  Country: None (occurrence: None)
  Receive Date: 20041221
  Receipt Date: 20040917
  Transmission Date: 20050328
  Serious: No
  Sender: FDA-Public Use
  Company Number: A-US2004-07455

PATIENT

DRUGS (1)
  1. TRACLEER [Suspect]
     Dosage: ORAL
     Route: 048

REACTIONS (1)
  - SYNCOPE [None]
